FAERS Safety Report 10043482 (Version 9)
Quarter: 2014Q2

REPORT INFORMATION
  Report Type: Spontaneous
  Country: GB (occurrence: None)
  Receive Date: 20140326
  Receipt Date: 20140521
  Transmission Date: 20141212
  Serious: Yes (Death, Other)
  Sender: FDA-Public Use
  Company Number: AUR-APL-2014-03736

PATIENT
  Sex: Female

DRUGS (6)
  1. IBUPROFEN [Suspect]
     Indication: PRODUCT USED FOR UNKNOWN INDICATION
     Dosage: UNKNOWN STOPPED
  2. METFORMIN [Suspect]
     Indication: DIABETES MELLITUS
     Dosage: UNKNOWN STOPPED
  3. APIXABAN [Suspect]
     Indication: KNEE ARTHROPLASTY
  4. METGLUCO [Suspect]
     Indication: DIABETES MELLITUS
  5. NAPROXEN (NAPROXEN) [Concomitant]
  6. RAMIPRIL (RAMIPRIL) [Concomitant]

REACTIONS (7)
  - Creatinine renal clearance increased [None]
  - Renal failure [None]
  - Dialysis [None]
  - Post procedural haemorrhage [None]
  - Drug interaction [None]
  - Blood pressure decreased [None]
  - Infection [None]
